FAERS Safety Report 23503784 (Version 2)
Quarter: 2024Q1

REPORT INFORMATION
  Report Type: Report from Study
  Country: BE (occurrence: BE)
  Receive Date: 20240209
  Receipt Date: 20240211
  Transmission Date: 20240410
  Serious: Yes (Death)
  Sender: FDA-Public Use
  Company Number: BE-ABBVIE-5629719

PATIENT
  Sex: Male
  Weight: 60 kg

DRUGS (18)
  1. CARBIDOPA\LEVODOPA [Suspect]
     Active Substance: CARBIDOPA\LEVODOPA
     Indication: Parkinson^s disease
     Dosage: MD: 1.0 ML + 3.0 ML, CD: 2.7 ML/H, ED: 3.0 ML, CND: 1.7 ML/H REMAINS AT 16 HOURS
     Route: 050
     Dates: start: 20230808, end: 20231011
  2. CARBIDOPA\LEVODOPA [Suspect]
     Active Substance: CARBIDOPA\LEVODOPA
     Dosage: MD: 1.0 ML + 3.0 ML, CD: 2.9 ML/H, ED: 3.0 ML, CND: 1.9 ML/H REMAINS AT 24 HOURS
     Route: 050
     Dates: start: 20231011, end: 20240112
  3. CARBIDOPA\LEVODOPA [Suspect]
     Active Substance: CARBIDOPA\LEVODOPA
     Dosage: MD: 1.0 ML + 3.0 ML, CD: 1.7 ML/H REMAINS AT 16 HOURS
     Route: 050
     Dates: start: 20240112, end: 20240115
  4. CARBIDOPA\LEVODOPA [Suspect]
     Active Substance: CARBIDOPA\LEVODOPA
     Dosage: MD: 1.0 ML + 3.0 ML, CD: 2.7 ML/H, ED: 3.0 ML, CND: 1.7 ML/H REMAINS AT 24 HOURS
     Route: 050
     Dates: start: 20230808, end: 20230808
  5. CARBIDOPA\LEVODOPA [Suspect]
     Active Substance: CARBIDOPA\LEVODOPA
     Dosage: MD: 1.5 ML + 3.0 ML, CD: 1.7 ML/H REMAINS AT 16 HOURS
     Route: 050
     Dates: start: 20240115, end: 20240123
  6. CARBIDOPA\LEVODOPA [Suspect]
     Active Substance: CARBIDOPA\LEVODOPA
     Dosage: MD: 1.5 ML + 3.0 ML, CD: 2.0 ML/H, ED: 2.0 ML REMAINS AT 16 HOURS?LAST ADMIN DATE 2024
     Route: 050
     Dates: start: 20240123
  7. CARBIDOPA\LEVODOPA [Suspect]
     Active Substance: CARBIDOPA\LEVODOPA
     Route: 050
     Dates: start: 20210119
  8. XADAGO [Concomitant]
     Active Substance: SAFINAMIDE MESYLATE
     Indication: Product used for unknown indication
  9. STALEVO [Concomitant]
     Active Substance: CARBIDOPA\ENTACAPONE\LEVODOPA
     Indication: Product used for unknown indication
  10. STALEVO [Concomitant]
     Active Substance: CARBIDOPA\ENTACAPONE\LEVODOPA
     Indication: Product used for unknown indication
  11. BENSERAZIDE\LEVODOPA [Concomitant]
     Active Substance: BENSERAZIDE\LEVODOPA
     Indication: Product used for unknown indication
     Dosage: FORM STRENGTH: 250 MILLIGRAM
  12. BENSERAZIDE\LEVODOPA [Concomitant]
     Active Substance: BENSERAZIDE\LEVODOPA
     Indication: Product used for unknown indication
     Dosage: FORM STRENGTH: 250 MILLIGRAM
  13. ASPIRIN [Concomitant]
     Active Substance: ASPIRIN
     Indication: Product used for unknown indication
  14. Pantomed [Concomitant]
     Indication: Product used for unknown indication
  15. Apogo pen [Concomitant]
     Indication: Product used for unknown indication
  16. RIVOTRIL [Concomitant]
     Active Substance: CLONAZEPAM
     Indication: Product used for unknown indication
  17. TRAMADOL HYDROCHLORIDE [Concomitant]
     Active Substance: TRAMADOL HYDROCHLORIDE
     Indication: Product used for unknown indication
  18. PIRACETAM CT [Concomitant]
     Indication: Product used for unknown indication

REACTIONS (1)
  - Death [Fatal]

NARRATIVE: CASE EVENT DATE: 20240207
